FAERS Safety Report 4422758-8 (Version None)
Quarter: 2004Q3

REPORT INFORMATION
  Report Type: 
  Country: None (occurrence: None)
  Receive Date: 20040713
  Receipt Date: 20030331
  Transmission Date: 20050211
  Serious: Yes (Hospitalization)
  Sender: FDA-Public Use
  Company Number: PHEH2003US02048

PATIENT
  Age: 59 Year
  Sex: Female
  Weight: 101.6 kg

DRUGS (4)
  1. ELIDEL [Suspect]
     Indication: ECZEMA
     Dosage: TOPICAL
     Route: 061
     Dates: start: 20030129, end: 20030303
  2. PULMICORT [Concomitant]
  3. CLARINEX [Concomitant]
  4. DYRENIUM [Concomitant]

REACTIONS (5)
  - HERPES VIRUS INFECTION [None]
  - LYMPHADENOPATHY [None]
  - PHARYNGOLARYNGEAL PAIN [None]
  - RASH VESICULAR [None]
  - UPPER RESPIRATORY TRACT INFECTION [None]
